FAERS Safety Report 16172695 (Version 1)
Quarter: 2019Q2

REPORT INFORMATION
  Report Type: Other
  Country: NL (occurrence: NL)
  Receive Date: 20190409
  Receipt Date: 20190409
  Transmission Date: 20190711
  Serious: Yes (Other)
  Sender: FDA-Public Use
  Company Number: NL-APOTEX-2019AP010981

PATIENT
  Age: 56 Year
  Sex: Female
  Weight: 64 kg

DRUGS (1)
  1. TERBINAFINE. [Suspect]
     Active Substance: TERBINAFINE
     Indication: ONYCHOMYCOSIS
     Dosage: 250 MG, QD (1X PER DAG 1 STUKS)
     Route: 065
     Dates: start: 20190118, end: 20190204

REACTIONS (2)
  - Arrhythmia [Recovered/Resolved]
  - Rash pruritic [Unknown]

NARRATIVE: CASE EVENT DATE: 20190125
